FAERS Safety Report 20920514 (Version 1)
Quarter: 2022Q2

REPORT INFORMATION
  Report Type: Spontaneous
  Country: US (occurrence: US)
  Receive Date: 20220606
  Receipt Date: 20220606
  Transmission Date: 20220721
  Serious: No
  Sender: FDA-Public Use
  Company Number: US-PFIZER INC-202200793364

PATIENT
  Age: 78 Year
  Sex: Female
  Weight: 62.14 kg

DRUGS (1)
  1. PAXLOVID [Suspect]
     Active Substance: NIRMATRELVIR\RITONAVIR
     Indication: COVID-19 treatment
     Dosage: 3 DF, 2X/DAY (300 MG NIRMATRELVIR (TWO 150 MG TABLETS) WITH 100 MG RITONAVIR (ONE 100 MG TABLET)

REACTIONS (5)
  - Dysgeusia [Unknown]
  - Dizziness [Unknown]
  - Feeling abnormal [Unknown]
  - Anxiety [Unknown]
  - Chest discomfort [Unknown]
